FAERS Safety Report 15429982 (Version 7)
Quarter: 2019Q2

REPORT INFORMATION
  Report Type: Spontaneous
  Country: US (occurrence: US)
  Receive Date: 20180926
  Receipt Date: 20190613
  Transmission Date: 20190711
  Serious: Yes (Hospitalization, Other)
  Sender: FDA-Public Use
  Company Number: US-PFIZER INC-2018381541

PATIENT
  Age: 67 Year
  Sex: Male
  Weight: 95 kg

DRUGS (11)
  1. COSENTYX [Concomitant]
     Active Substance: SECUKINUMAB
     Indication: PSORIATIC ARTHROPATHY
     Dosage: 2 DF, MONTHLY [2 SHOTS EVERY MONTH]
  2. LYRICA [Suspect]
     Active Substance: PREGABALIN
     Dosage: UNK
  3. LYRICA [Suspect]
     Active Substance: PREGABALIN
     Dosage: 300 MG, UNK
  4. LYRICA [Suspect]
     Active Substance: PREGABALIN
     Dosage: 200 MG, UNK
  5. LYRICA [Suspect]
     Active Substance: PREGABALIN
     Indication: NEUROPATHY PERIPHERAL
     Dosage: 1000 MG, DAILY (200 MG, DAILY THREE CAPSULES EVERY MORNING AND TWO CAPSULES AT NIGHT)
     Route: 048
  6. LYRICA [Suspect]
     Active Substance: PREGABALIN
     Dosage: UNK, 3X/DAY (3 A DAY)
  7. TOPEX AC [Concomitant]
     Indication: PSORIATIC ARTHROPATHY
     Dosage: 80 MG, UNK, (2 SHOTS THE FIRST WEEK, THEN ONE INJECTION EVERY 2 WEEKS)
  8. LYRICA [Suspect]
     Active Substance: PREGABALIN
     Dosage: 400 MG, DAILY (AT NIGHT)
     Route: 048
  9. OXYCODONE [Concomitant]
     Active Substance: OXYCODONE
     Indication: PAIN
     Dosage: 100 MG, DAILY (20MG, TABLET, BY MOUTH, FIVE TIMES DAILY)
     Route: 048
  10. OXYCODONE [Concomitant]
     Active Substance: OXYCODONE
     Dosage: 30 MG, UNK
  11. LYRICA [Suspect]
     Active Substance: PREGABALIN
     Dosage: 600 MG, DAILY (BY MOUTH, IN THE MORNING)
     Route: 048

REACTIONS (9)
  - Burning sensation [Not Recovered/Not Resolved]
  - Feeling abnormal [Unknown]
  - Pneumonia [Unknown]
  - Emotional disorder [Unknown]
  - Weight decreased [Unknown]
  - Stress [Unknown]
  - Intentional product misuse [Unknown]
  - Prescribed overdose [Unknown]
  - Pain [Unknown]

NARRATIVE: CASE EVENT DATE: 201803
